FAERS Safety Report 9000366 (Version 2)
Quarter: 2012Q4

REPORT INFORMATION
  Report Type: Spontaneous
  Country: US (occurrence: None)
  Receive Date: 20121221
  Receipt Date: 20121231
  Transmission Date: 20130627
  Serious: Yes (Death, Hospitalization)
  Sender: FDA-Public Use
  Company Number: JPI-P-026859

PATIENT
  Age: 46 Year
  Sex: Female

DRUGS (17)
  1. XYREM (500 MILLIGRAM/MILLILITERS, SOLUTION) (SODIUM OXYBATE) [Suspect]
     Indication: SLEEP DISTURBANCE
     Dosage: 6 gm (3 gm, 2 in 1 D) , Oral
     Route: 048
     Dates: start: 20041209
  2. XYREM (500 MILLIGRAM/MILLILITERS, SOLUTION) (SODIUM OXYBATE) [Suspect]
     Indication: SLEEP DISTURBANCE
     Dosage: 6 gm (3 gm, 2 in 1 D) , Oral
     Route: 048
     Dates: start: 20041209
  3. XYREM (500 MILLIGRAM/MILLILITERS, SOLUTION) (SODIUM OXYBATE) [Suspect]
     Indication: SLEEP DISTURBANCE
     Dosage: 5-6 GM 2nd dose , oral
     Route: 048
     Dates: start: 20100616, end: 20121123
  4. XYREM (500 MILLIGRAM/MILLILITERS, SOLUTION) (SODIUM OXYBATE) [Suspect]
     Indication: SLEEP DISTURBANCE
     Dosage: 5-6 GM 2nd dose , oral
     Route: 048
     Dates: start: 20100616, end: 20121123
  5. CYANOCOBALAMIN [Concomitant]
  6. TROSPIUM CHLORIDE [Concomitant]
  7. ATENOLOL [Concomitant]
  8. VITAMIN D [Concomitant]
  9. PHOSPHATIDYLSERINE [Concomitant]
  10. LISINOPRIL [Concomitant]
  11. MODAFINIL [Concomitant]
  12. TADALAFIL [Concomitant]
  13. METANX [Concomitant]
  14. MECLIZINE HYDROCHLORIDE [Concomitant]
  15. NEUROMAX [Concomitant]
  16. HYDROXYZINE HCL [Concomitant]
  17. OXCARBAZEPINE [Concomitant]

REACTIONS (17)
  - Cystocele [None]
  - Rectocele [None]
  - Therapeutic response decreased [None]
  - Muscle spasms [None]
  - Fatigue [None]
  - Pollakiuria [None]
  - Sinusitis fungal [None]
  - Sinusitis [None]
  - Blood pressure increased [None]
  - Influenza like illness [None]
  - Nausea [None]
  - Poor quality sleep [None]
  - Insomnia [None]
  - Malaise [None]
  - Vomiting [None]
  - Confusional state [None]
  - Memory impairment [None]
